FAERS Safety Report 15127744 (Version 3)
Quarter: 2018Q3

REPORT INFORMATION
  Report Type: Spontaneous
  Country: GR (occurrence: GR)
  Receive Date: 20180710
  Receipt Date: 20180822
  Transmission Date: 20181010
  Serious: Yes (Hospitalization, Other)
  Sender: FDA-Public Use
  Company Number: GR-SHIRE-GR201823804

PATIENT

DRUGS (1)
  1. AGRYLIN [Suspect]
     Active Substance: ANAGRELIDE HYDROCHLORIDE
     Indication: ESSENTIAL THROMBOCYTHAEMIA
     Dosage: UNK
     Route: 065

REACTIONS (6)
  - Dyspnoea [Unknown]
  - Cardiomyopathy [Recovering/Resolving]
  - Palpitations [Unknown]
  - Brain natriuretic peptide increased [Recovered/Resolved]
  - Cardiac failure [Recovering/Resolving]
  - Fatigue [Unknown]
